FAERS Safety Report 4481440-1 (Version None)
Quarter: 2004Q3

REPORT INFORMATION
  Report Type: 
  Country: None (occurrence: None)
  Receive Date: 20040923
  Receipt Date: 20040526
  Transmission Date: 20050211
  Serious: No
  Sender: FDA-Public Use
  Company Number: USA040568659

PATIENT
  Age: 85 Year
  Sex: Female
  Weight: 52 kg

DRUGS (5)
  1. FORTEO [Suspect]
     Indication: OSTEOPOROSIS
     Dosage: 20 UG/1 DAY
     Dates: start: 20040401
  2. ALBUTEROL [Concomitant]
  3. ADVAIR [Concomitant]
  4. XALATAN [Concomitant]
  5. CALCIUM CARBONATE [Concomitant]

REACTIONS (2)
  - BREAST PAIN [None]
  - PRURITUS [None]
